FAERS Safety Report 9276421 (Version 2)
Quarter: 2013Q3

REPORT INFORMATION
  Report Type: Spontaneous
  Country: US (occurrence: US)
  Receive Date: 20130507
  Receipt Date: 20130823
  Transmission Date: 20140515
  Serious: Yes (Hospitalization, Other)
  Sender: FDA-Public Use
  Company Number: US-009507513-1305USA002791

PATIENT
  Sex: Female
  Weight: 109.3 kg

DRUGS (3)
  1. NUVARING [Suspect]
     Indication: CONTRACEPTION
     Dosage: UNK
     Route: 067
     Dates: start: 20101015, end: 201011
  2. NUVARING [Suspect]
     Dosage: UNK
     Route: 067
     Dates: start: 20110415, end: 20110519
  3. NUVARING [Suspect]
     Dosage: UNK
     Route: 067
     Dates: start: 20080331

REACTIONS (10)
  - Spinal fusion surgery [Unknown]
  - Pulmonary embolism [Not Recovered/Not Resolved]
  - Gestational diabetes [Unknown]
  - Thyroid disorder [Unknown]
  - Irritable bowel syndrome [Unknown]
  - Iron deficiency anaemia [Unknown]
  - Vitamin B12 deficiency [Unknown]
  - Menorrhagia [Unknown]
  - Maternal exposure before pregnancy [Unknown]
  - Tachycardia [Unknown]
